FAERS Safety Report 16010916 (Version 1)
Quarter: 2019Q1

REPORT INFORMATION
  Report Type: Spontaneous
  Country: US (occurrence: US)
  Receive Date: 20190227
  Receipt Date: 20190227
  Transmission Date: 20190418
  Serious: No
  Sender: FDA-Public Use
  Company Number: US-APOTEX-2018AP024762

PATIENT
  Sex: Male

DRUGS (1)
  1. IMATINIB MESYLATE TABLETS [Suspect]
     Active Substance: IMATINIB MESYLATE
     Indication: MYELOID LEUKAEMIA
     Dosage: 100 MG, UNK
     Route: 048
     Dates: start: 201802

REACTIONS (7)
  - Product storage error [Unknown]
  - Eructation [Unknown]
  - Dyspepsia [Unknown]
  - Chromaturia [Unknown]
  - Muscle strain [Unknown]
  - Product physical issue [Unknown]
  - Product substitution issue [Unknown]

NARRATIVE: CASE EVENT DATE: 201807
